FAERS Safety Report 15743824 (Version 2)
Quarter: 2019Q2

REPORT INFORMATION
  Report Type: Spontaneous
  Country: JP (occurrence: JP)
  Receive Date: 20181220
  Receipt Date: 20190513
  Transmission Date: 20190711
  Serious: No
  Sender: FDA-Public Use
  Company Number: JP-ACTELION-A-CH2016-147022

PATIENT
  Age: 76 Year
  Sex: Female

DRUGS (9)
  1. OPSUMIT [Suspect]
     Active Substance: MACITENTAN
     Dosage: 5 MG, QD
     Route: 048
     Dates: start: 20161101, end: 20161107
  2. BAYASPIRIN [Suspect]
     Active Substance: ASPIRIN
     Indication: ANGINA PECTORIS
     Dosage: 100 MG, QD
     Route: 048
     Dates: start: 20161103
  3. DORNER [Concomitant]
     Active Substance: BERAPROST SODIUM
  4. OPSUMIT [Suspect]
     Active Substance: MACITENTAN
     Indication: PULMONARY ARTERIAL HYPERTENSION
     Dosage: 10 MG, QD
     Route: 048
     Dates: start: 20161108
  5. ZETIA [Concomitant]
     Active Substance: EZETIMIBE
  6. BELSOMRA [Concomitant]
     Active Substance: SUVOREXANT
  7. OXYGEN. [Concomitant]
     Active Substance: OXYGEN
  8. CARELOAD [Suspect]
     Active Substance: BERAPROST SODIUM
     Indication: PULMONARY ARTERIAL HYPERTENSION
     Dosage: 180 MCG, BID
     Route: 048
     Dates: start: 20161101
  9. NICORANDIL [Concomitant]
     Active Substance: NICORANDIL

REACTIONS (1)
  - Melaena [Recovered/Resolved]

NARRATIVE: CASE EVENT DATE: 20180604
